FAERS Safety Report 9277510 (Version 1)
Quarter: 2013Q2

REPORT INFORMATION
  Report Type: Spontaneous
  Country: JP (occurrence: JP)
  Receive Date: 20130508
  Receipt Date: 20130508
  Transmission Date: 20140414
  Serious: Yes (Other)
  Sender: FDA-Public Use
  Company Number: JP-MYLANLABS-2013S1009290

PATIENT
  Age: 45 Year
  Sex: Male

DRUGS (3)
  1. FLUOROURACIL [Suspect]
     Indication: COLON CANCER
     Route: 065
     Dates: start: 201103, end: 20111104
  2. FOLINIC ACID [Suspect]
     Indication: COLON CANCER
     Route: 065
     Dates: start: 201103, end: 20111104
  3. OXALIPLATIN [Suspect]
     Indication: COLON CANCER
     Route: 065
     Dates: start: 201103, end: 20111104

REACTIONS (3)
  - Liver injury [Unknown]
  - Cholecystitis [Recovered/Resolved]
  - Neutropenia [Unknown]
